FAERS Safety Report 10748301 (Version 2)
Quarter: 2015Q1

REPORT INFORMATION
  Report Type: Report from Study
  Country: US (occurrence: US)
  Receive Date: 20150129
  Receipt Date: 20150316
  Transmission Date: 20150721
  Serious: No
  Sender: FDA-Public Use
  Company Number: US-AMGEN-USASL2015007842

PATIENT
  Age: 61 Year
  Sex: Female

DRUGS (1)
  1. ENBREL [Suspect]
     Active Substance: ETANERCEPT
     Indication: PSORIATIC ARTHROPATHY
     Dosage: 50 MG, QWK
     Route: 065
     Dates: start: 20141219

REACTIONS (4)
  - Injection site reaction [Not Recovered/Not Resolved]
  - Drug ineffective [Not Recovered/Not Resolved]
  - Peripheral swelling [Not Recovered/Not Resolved]
  - Injection site erythema [Not Recovered/Not Resolved]

NARRATIVE: CASE EVENT DATE: 201502
